FAERS Safety Report 5654429-4 (Version None)
Quarter: 2008Q1

REPORT INFORMATION
  Report Type: 
  Country: None (occurrence: None)
  Receive Date: 20080305
  Receipt Date: 20080226
  Transmission Date: 20080703
  Serious: Yes (Hospitalization)
  Sender: FDA-Public Use
  Company Number: 2008S1001332

PATIENT
  Age: 43 Year
  Sex: Female

DRUGS (6)
  1. PHOSPHOSODA GINGER LEMON [Suspect]
     Indication: COLONOSCOPY
     Dosage: 45 ML;X1;PO
     Route: 048
     Dates: start: 20080219, end: 20080219
  2. ALDACTONE [Concomitant]
  3. AMARYL [Concomitant]
  4. MONOPRIL [Concomitant]
  5. CARDIZEM [Concomitant]
  6. BEYTTA [Concomitant]

REACTIONS (7)
  - AURICULAR SWELLING [None]
  - LIP SWELLING [None]
  - OEDEMA PERIPHERAL [None]
  - SENSATION OF HEAVINESS [None]
  - SWOLLEN TONGUE [None]
  - TINNITUS [None]
  - URTICARIA [None]
